FAERS Safety Report 6305610-2 (Version None)
Quarter: 2009Q3

REPORT INFORMATION
  Report Type: 
  Country: None (occurrence: None)
  Receive Date: 20090806
  Receipt Date: 20090721
  Transmission Date: 20100115
  Serious: Yes (Hospitalization)
  Sender: FDA-Public Use
  Company Number: 2009070034

PATIENT
  Age: 58 Year
  Sex: Female

DRUGS (4)
  1. TORSEMIDE [Suspect]
     Indication: PLEURAL EFFUSION
     Dosage: 8 MG (8 MG, 1 IN 1 D), ORAL
     Route: 048
     Dates: start: 20090330, end: 20090606
  2. SUNITINIB MALATE (SUNITINIB MALATE) [Suspect]
     Indication: BREAST CANCER
     Dosage: 37.5 MG (37.5 MG, 1 IN 1 D), ORAL
     Route: 048
     Dates: start: 20081023, end: 20090429
  3. GABAPENTIN [Suspect]
     Dosage: 200 MG (200 MG, 1 IN 1 D), ORAL
     Route: 048
     Dates: start: 20090105
  4. BROMHEXINE HYDROCHLORIDE (BROMHEXINE HYDROCHLORIDE) [Concomitant]

REACTIONS (9)
  - BLOOD ALBUMIN DECREASED [None]
  - BLOOD ALBUMIN INCREASED [None]
  - BREAST CANCER FEMALE [None]
  - DECREASED APPETITE [None]
  - MALIGNANT NEOPLASM PROGRESSION [None]
  - NEUTROPHIL COUNT DECREASED [None]
  - PAIN IN EXTREMITY [None]
  - PLEURAL EFFUSION [None]
  - WEIGHT DECREASED [None]
